FAERS Safety Report 4395179-4 (Version None)
Quarter: 2004Q3

REPORT INFORMATION
  Report Type: 
  Country: None (occurrence: None)
  Receive Date: 20040706
  Receipt Date: 20040625
  Transmission Date: 20050211
  Serious: Yes (Hospitalization)
  Sender: FDA-Public Use
  Company Number: 200410334BYL

PATIENT
  Age: 60 Year
  Sex: Male
  Weight: 56 kg

DRUGS (5)
  1. ASPIRIN [Suspect]
     Indication: ACUTE MYOCARDIAL INFARCTION
     Dosage: 100 MG, BID, ORAL
     Route: 048
     Dates: start: 20040326, end: 20040525
  2. TICLOPIDINE HCL [Suspect]
     Indication: ACUTE MYOCARDIAL INFARCTION
     Dosage: 100 MG, BID, ORAL
     Route: 048
     Dates: start: 20040326, end: 20040525
  3. PRAVASTATIN SODIUM [Concomitant]
  4. PARIET [Concomitant]
  5. CARVEDILOL [Concomitant]

REACTIONS (2)
  - CHOLESTASIS [None]
  - JAUNDICE [None]
